FAERS Safety Report 10663977 (Version 1)
Quarter: 2014Q4

REPORT INFORMATION
  Report Type: Spontaneous
  Country: US (occurrence: US)
  Receive Date: 20141219
  Receipt Date: 20141219
  Transmission Date: 20150529
  Serious: Yes (Other)
  Sender: FDA-Public Use
  Company Number: US-GILEAD-2014-0127924

PATIENT
  Age: 74 Year
  Sex: Female

DRUGS (1)
  1. LETAIRIS [Suspect]
     Active Substance: AMBRISENTAN
     Indication: PRODUCT USED FOR UNKNOWN INDICATION
     Dosage: 5 MG, UNK
     Route: 065
     Dates: start: 20140923

REACTIONS (8)
  - Drug ineffective [Unknown]
  - Blood glucose abnormal [Unknown]
  - Mobility decreased [Unknown]
  - Fatigue [Unknown]
  - Condition aggravated [Unknown]
  - Hypersomnia [Unknown]
  - Oxygen supplementation [Unknown]
  - Constipation [Unknown]
